FAERS Safety Report 4497513-3 (Version None)
Quarter: 2004Q4

REPORT INFORMATION
  Report Type: 
  Country: None (occurrence: None)
  Receive Date: 20041110
  Receipt Date: 20041101
  Transmission Date: 20050328
  Serious: Yes (Hospitalization)
  Sender: FDA-Public Use
  Company Number: GB-ROCHE-385288

PATIENT
  Age: 13 Year
  Sex: Male

DRUGS (2)
  1. ISOTRETINOIN [Suspect]
     Indication: DRUG USE FOR UNKNOWN INDICATION
     Route: 048
  2. ISOTRETINOIN [Suspect]
     Route: 048

REACTIONS (5)
  - EPISTAXIS [None]
  - GUILLAIN-BARRE SYNDROME [None]
  - HEADACHE [None]
  - LETHARGY [None]
  - PARESIS [None]
